FAERS Safety Report 25118946 (Version 1)
Quarter: 2025Q1

REPORT INFORMATION
  Report Type: Spontaneous
  Country: GB (occurrence: GB)
  Receive Date: 20250325
  Receipt Date: 20250325
  Transmission Date: 20250409
  Serious: Yes (Disabling, Other)
  Sender: ELI LILLY AND COMPANY
  Company Number: None

PATIENT
  Sex: Female

DRUGS (2)
  1. EMGALITY [Suspect]
     Active Substance: GALCANEZUMAB-GNLM
     Indication: Vestibular migraine
     Route: 065
     Dates: start: 20250203
  2. PIZOTYLINE [Concomitant]
     Active Substance: PIZOTYLINE
     Indication: Migraine
     Route: 065
     Dates: start: 20230601

REACTIONS (6)
  - Panic attack [Not Recovered/Not Resolved]
  - Myalgia [Not Recovered/Not Resolved]
  - Neuralgia [Not Recovered/Not Resolved]
  - Hypertension [Recovering/Resolving]
  - Vertigo [Recovering/Resolving]
  - Off label use [Unknown]
